FAERS Safety Report 16119037 (Version 1)
Quarter: 2019Q1

REPORT INFORMATION
  Report Type: Spontaneous
  Country: IL (occurrence: IL)
  Receive Date: 20190326
  Receipt Date: 20190326
  Transmission Date: 20190418
  Serious: Yes (Hospitalization, Other)
  Sender: FDA-Public Use
  Company Number: IL-009507513-1903ISR010685

PATIENT
  Sex: Female

DRUGS (2)
  1. KEYTRUDA [Suspect]
     Active Substance: PEMBROLIZUMAB
     Indication: LUNG ADENOCARCINOMA
     Dosage: UNK UNK, CYCLICAL
  2. KEYTRUDA [Suspect]
     Active Substance: PEMBROLIZUMAB
     Indication: METASTASES TO ADRENALS

REACTIONS (5)
  - Product use in unapproved indication [Unknown]
  - Endocrine disorder [Unknown]
  - Blood prolactin increased [Unknown]
  - Malignant neoplasm progression [Unknown]
  - Cortisol decreased [Not Recovered/Not Resolved]
